FAERS Safety Report 7912747-0 (Version None)
Quarter: 2011Q4

REPORT INFORMATION
  Report Type: 
  Country: None (occurrence: None)
  Receive Date: 20111114
  Receipt Date: 20111109
  Transmission Date: 20120403
  Serious: Yes (Death, Hospitalization)
  Sender: FDA-Public Use
  Company Number: FR-PFIZER INC-2011038202

PATIENT
  Age: 88 Year
  Sex: Female

DRUGS (8)
  1. RIFAMYCIN ^CHIBRET^ [Concomitant]
  2. CEFTRIAXONE [Suspect]
     Indication: LUNG DISORDER
     Dosage: 1 GM (1G/10ML)
     Route: 042
     Dates: start: 20110120, end: 20110126
  3. PANTOPRAZOLE [Suspect]
     Dosage: 40 MG, UNK
     Route: 048
     Dates: start: 20110119, end: 20110126
  4. VASTAREL [Concomitant]
     Dosage: 35 MILLIGRAM
  5. ATROVENT [Concomitant]
  6. ASPIRIN [Concomitant]
  7. BRICANYL [Concomitant]
  8. CLONAZEPAM [Concomitant]

REACTIONS (1)
  - THROMBOCYTOPENIA [None]
